FAERS Safety Report 11331025 (Version 1)
Quarter: 2015Q3

REPORT INFORMATION
  Report Type: Spontaneous
  Country: US (occurrence: None)
  Receive Date: 20150730
  Receipt Date: 20150730
  Transmission Date: 20151125
  Serious: Yes (Hospitalization, Disabling)
  Sender: FDA-Public Use
  Company Number: None

PATIENT
  Age: 30 Year
  Sex: Male
  Weight: 86.18 kg

DRUGS (3)
  1. VIMPAT [Concomitant]
     Active Substance: LACOSAMIDE
  2. ONFI [Concomitant]
     Active Substance: CLOBAZAM
  3. OXCARBAZEPINE. [Suspect]
     Active Substance: OXCARBAZEPINE
     Indication: CONVULSION PROPHYLAXIS
     Dates: start: 20141006, end: 20141217

REACTIONS (8)
  - Generalised tonic-clonic seizure [None]
  - Head injury [None]
  - Tooth loss [None]
  - Limb injury [None]
  - Memory impairment [None]
  - Depression [None]
  - Product substitution issue [None]
  - Impaired work ability [None]

NARRATIVE: CASE EVENT DATE: 20150103
